FAERS Safety Report 11438510 (Version 1)
Quarter: 2015Q3

REPORT INFORMATION
  Report Type: Spontaneous
  Country: US (occurrence: US)
  Receive Date: 20150901
  Receipt Date: 20150901
  Transmission Date: 20151125
  Serious: No
  Sender: FDA-Public Use
  Company Number: US-ROCHE-1140147

PATIENT
  Sex: Male

DRUGS (5)
  1. RIBAVIRIN. [Suspect]
     Active Substance: RIBAVIRIN
     Route: 065
  2. ATARAX (UNITED STATES) [Concomitant]
  3. TELAPREVIR [Suspect]
     Active Substance: TELAPREVIR
     Indication: HEPATITIS C
     Route: 065
     Dates: start: 20120804
  4. PEGASYS [Suspect]
     Active Substance: PEGINTERFERON ALFA-2A
     Indication: HEPATITIS C
     Route: 065
     Dates: start: 20120804
  5. RIBAVIRIN. [Suspect]
     Active Substance: RIBAVIRIN
     Indication: HEPATITIS C
     Route: 065
     Dates: start: 20120804

REACTIONS (10)
  - Dizziness [Unknown]
  - Tinnitus [Unknown]
  - Stress [Unknown]
  - Influenza like illness [Unknown]
  - Pyrexia [Unknown]
  - Dyspnoea [Unknown]
  - Anaemia [Unknown]
  - Hallucination, visual [Unknown]
  - Rash [Unknown]
  - Memory impairment [Unknown]
